FAERS Safety Report 5457722-3 (Version None)
Quarter: 2007Q3

REPORT INFORMATION
  Report Type: 
  Country: None (occurrence: None)
  Receive Date: 20070917
  Receipt Date: 20070904
  Transmission Date: 20080115
  Serious: Yes (Death, Other)
  Sender: FDA-Public Use
  Company Number: 018204

PATIENT
  Age: 59 Year
  Sex: Female

DRUGS (4)
  1. MEDROXYPROGESTERONE [Suspect]
     Dates: start: 19880101, end: 19960101
  2. PREMARIN [Suspect]
     Dates: start: 19880101, end: 19960101
  3. PROVERA [Suspect]
     Dates: start: 19880101, end: 19960101
  4. PREMPRO [Suspect]
     Dates: start: 19960101, end: 20010101

REACTIONS (1)
  - OVARIAN CANCER [None]
